FAERS Safety Report 8057256-6 (Version None)
Quarter: 2012Q1

REPORT INFORMATION
  Report Type: 
  Country: None (occurrence: None)
  Receive Date: 20120119
  Receipt Date: 20120116
  Transmission Date: 20120608
  Serious: Yes (Hospitalization, Other)
  Sender: FDA-Public Use
  Company Number: PHEH2008US03405

PATIENT
  Sex: Male

DRUGS (45)
  1. INTERFERON [Concomitant]
  2. DECADRON [Concomitant]
  3. PULMOCARE [Concomitant]
  4. METOPROLOL TARTRATE [Concomitant]
  5. LASIX [Concomitant]
     Dosage: 20 MG, UNK
     Route: 042
  6. LEVAQUIN [Concomitant]
     Dosage: 750 MG, QD
     Route: 042
  7. MONTELUKAST SODIUM [Concomitant]
     Dosage: 1 DF, QHS
     Route: 048
  8. INTRON [Concomitant]
  9. MICAFUNGIN [Concomitant]
     Dosage: 100 MG, UNK
     Route: 042
  10. DAPTOMYCIN [Concomitant]
     Dosage: 320 MG, UNK
     Route: 042
  11. LOMOTIL [Concomitant]
     Dosage: 2 DF, UNK
  12. PROCRIT [Concomitant]
  13. AMOXICILLIN [Concomitant]
     Dosage: 500 MG, UNK
     Dates: start: 20080107
  14. FLAGYL [Concomitant]
     Dates: start: 20080107
  15. PRAVASTATIN [Concomitant]
  16. LIPITOR [Concomitant]
     Indication: HYPERCHOLESTEROLAEMIA
  17. FONDAPARINUX SODIUM [Concomitant]
     Dosage: 2.5 MG, UNK
     Route: 058
  18. FENTANYL CITRATE [Concomitant]
     Dosage: 0.025 MG, UNK
     Route: 042
  19. BACTRIM [Concomitant]
     Route: 048
  20. REVLIMID [Concomitant]
     Dosage: 15 MG, QD
     Route: 048
  21. LORTAB [Concomitant]
     Dosage: 5-500 MG, Q4H, PRN
  22. PERIDEX [Concomitant]
     Dosage: 15 CM3 FOR 30 SEC, TID
  23. CHLORHEXIDINE GLUCONATE [Concomitant]
  24. MIDAZOLAM                               /USA/ [Concomitant]
     Dosage: 2 MG, UNK
     Route: 042
  25. VERAPAMIL [Concomitant]
     Dosage: 240 MG, UNK
     Route: 048
  26. ALTEPLASE [Concomitant]
     Dosage: 2 MG, UNK
     Route: 042
  27. HEPARIN LOCK-FLUSH [Concomitant]
     Dosage: 1 ML, UNK
     Route: 042
  28. VANCOMYCIN [Concomitant]
     Dosage: 750 MG, UNK
     Route: 042
  29. MEROPENEM [Concomitant]
     Dosage: 500 MG, QD
     Route: 042
  30. TRAMADOL HCL [Concomitant]
     Dosage: 50 MG, UNK
  31. METOLAZONE [Concomitant]
  32. COREG [Concomitant]
     Dosage: 25 MG, UNK
  33. AREDIA [Suspect]
     Dosage: UNK UKN, QMO
     Dates: end: 20070401
  34. HYDROCODONE BITARTRATE [Concomitant]
  35. DORIPENEM MONOHYDRATE [Concomitant]
     Dosage: 250 MG, UNK
     Route: 042
  36. BUMETANIDE [Concomitant]
     Dosage: 1 MG, UNK
     Route: 042
  37. LANSOPRAZOLE [Concomitant]
     Dosage: 30 MG, UNK
     Route: 048
  38. AMPICILLIN [Concomitant]
     Dosage: 2 G, UNK
     Route: 042
  39. LEVOFLOXACIN [Concomitant]
     Dosage: 500 MG, UNK
     Route: 042
  40. PENICILLIN V POTASSIUM [Concomitant]
     Dosage: 1 TAB Q8 HRS
     Route: 048
  41. CLINDAMYCIN [Concomitant]
     Dosage: 300 MG, UNK
  42. AMOXAPINE [Concomitant]
  43. LISINOPRIL [Concomitant]
     Indication: HYPERTENSION
  44. INSULIN HUMAN [Concomitant]
     Route: 058
  45. PANTOPRAZOLE [Concomitant]

REACTIONS (62)
  - INFECTION [None]
  - METASTASES TO BONE [None]
  - URINARY TRACT INFECTION [None]
  - SEPSIS SYNDROME [None]
  - ENCEPHALOPATHY [None]
  - BACK PAIN [None]
  - PYREXIA [None]
  - RESPIRATORY FAILURE [None]
  - PAIN [None]
  - ANXIETY [None]
  - HYPERPLASIA [None]
  - ANGINA PECTORIS [None]
  - OSTEOLYSIS [None]
  - RENAL FAILURE [None]
  - CATARACT [None]
  - MALNUTRITION [None]
  - CONVULSION [None]
  - SKIN DISORDER [None]
  - OSTEONECROSIS OF JAW [None]
  - INTERVERTEBRAL DISC DEGENERATION [None]
  - HYPOAESTHESIA ORAL [None]
  - BONE DISORDER [None]
  - AORTIC DILATATION [None]
  - PNEUMONIA [None]
  - THROMBOCYTOPENIA [None]
  - LUNG NEOPLASM [None]
  - INTERVERTEBRAL DISC COMPRESSION [None]
  - ORAL CAVITY FISTULA [None]
  - COLONIC POLYP [None]
  - LUMBAR SPINAL STENOSIS [None]
  - MULTIPLE MYELOMA [None]
  - CELLULITIS [None]
  - NASOPHARYNGEAL CANCER [None]
  - RHINORRHOEA [None]
  - HYPERNATRAEMIA [None]
  - DIARRHOEA [None]
  - TOOTH ABSCESS [None]
  - GENERAL PHYSICAL HEALTH DETERIORATION [None]
  - OCCULT BLOOD POSITIVE [None]
  - SPINAL OSTEOARTHRITIS [None]
  - TACHYCARDIA [None]
  - APHONIA [None]
  - LYMPHADENOPATHY [None]
  - ARTHRALGIA [None]
  - OEDEMA [None]
  - OSTEOMYELITIS [None]
  - COMPRESSION FRACTURE [None]
  - ATELECTASIS [None]
  - DYSARTHRIA [None]
  - DYSPHAGIA [None]
  - BONE PAIN [None]
  - JOINT EFFUSION [None]
  - PAIN IN JAW [None]
  - ORAL DISORDER [None]
  - ANAEMIA [None]
  - AORTIC ARTERIOSCLEROSIS [None]
  - ENDOCARDITIS [None]
  - FUNGAEMIA [None]
  - NEOPLASM MALIGNANT [None]
  - PLEURAL EFFUSION [None]
  - WEIGHT DECREASED [None]
  - GASTROINTESTINAL DISORDER [None]
